FAERS Safety Report 9645828 (Version 1)
Quarter: 2013Q4

REPORT INFORMATION
  Report Type: Spontaneous
  Country: US (occurrence: US)
  Receive Date: 20131025
  Receipt Date: 20131025
  Transmission Date: 20140711
  Serious: No
  Sender: FDA-Public Use
  Company Number: US-MYLANLABS-2013S1020446

PATIENT
  Age: 55 Year
  Sex: Female
  Weight: 63.5 kg

DRUGS (6)
  1. RIZATRIPTAN BENZOATE ORALLY DISINTEGRATING TABLETS [Suspect]
     Indication: HEADACHE
     Route: 048
     Dates: start: 201308
  2. ZOLPIDEM [Concomitant]
     Indication: INSOMNIA
     Dosage: TABLET, PRN
     Route: 048
  3. ZALEPLON [Concomitant]
     Indication: INSOMNIA
     Dosage: PRN
  4. FEMRING [Concomitant]
  5. PATADAY [Concomitant]
     Indication: MULTIPLE ALLERGIES
  6. TRIMETHOPRIM-SULFAMETHOXAZOLE [Concomitant]
     Indication: CYSTITIS
     Route: 048

REACTIONS (2)
  - Drug ineffective [Not Recovered/Not Resolved]
  - Headache [Not Recovered/Not Resolved]
